FAERS Safety Report 14971161 (Version 1)
Quarter: 2018Q2

REPORT INFORMATION
  Report Type: Report from Study
  Country: FR (occurrence: FR)
  Receive Date: 20180604
  Receipt Date: 20180604
  Transmission Date: 20180711
  Serious: No
  Sender: FDA-Public Use
  Company Number: FR-BIOVERATIV-2018BV000326

PATIENT
  Age: 38 Year

DRUGS (1)
  1. ELOCTA [Suspect]
     Active Substance: EFMOROCTOCOG ALFA
     Indication: HAEMOPHILIA
     Route: 065

REACTIONS (2)
  - Drug ineffective [Unknown]
  - Haemarthrosis [Unknown]
